FAERS Safety Report 22522986 (Version 1)
Quarter: 2023Q2

REPORT INFORMATION
  Report Type: Spontaneous
  Country: RS (occurrence: RS)
  Receive Date: 20230606
  Receipt Date: 20230606
  Transmission Date: 20230721
  Serious: Yes (Death, Hospitalization, Other)
  Sender: FDA-Public Use
  Company Number: RS-JNJFOC-20230573039

PATIENT

DRUGS (1)
  1. IMBRUVICA [Suspect]
     Active Substance: IBRUTINIB
     Indication: Mantle cell lymphoma
     Route: 048

REACTIONS (7)
  - Death [Fatal]
  - Infection [Fatal]
  - Neutropenia [Fatal]
  - Myalgia [Unknown]
  - Skin disorder [Unknown]
  - Hypertension [Unknown]
  - Thrombocytopenia [Fatal]
